FAERS Safety Report 25090438 (Version 1)
Quarter: 2025Q1

REPORT INFORMATION
  Report Type: Spontaneous
  Country: US (occurrence: US)
  Receive Date: 20250318
  Receipt Date: 20250318
  Transmission Date: 20250409
  Serious: No
  Sender: QUAGEN PHARMACEUTICALS
  Company Number: US-QUAGEN-2025QUASPO00280

PATIENT

DRUGS (3)
  1. LIDOCAINE [Suspect]
     Active Substance: LIDOCAINE
     Indication: Oropharyngeal pain
     Route: 065
  2. Theraflu [Caffeine;Codeine Phosphate;Paracetamol;Piperylone Maleate] [Concomitant]
     Indication: Oropharyngeal pain
     Route: 065
  3. TYLENOL [Concomitant]
     Active Substance: ACETAMINOPHEN
     Indication: Oropharyngeal pain
     Route: 065

REACTIONS (1)
  - Drug ineffective for unapproved indication [Unknown]
